FAERS Safety Report 10177016 (Version 1)
Quarter: 2014Q2

REPORT INFORMATION
  Report Type: Spontaneous
  Country: US (occurrence: None)
  Receive Date: 20140515
  Receipt Date: 20140515
  Transmission Date: 20141212
  Serious: Yes (Disabling)
  Sender: FDA-Public Use
  Company Number: None

PATIENT
  Age: 65 Year
  Sex: Female
  Weight: 58.97 kg

DRUGS (2)
  1. ATELVIA [Suspect]
     Indication: BONE DENSITY DECREASED
     Dosage: 1 PILL WEEKLY TAKEN BY MOUTH
     Route: 048
  2. ATELVIA [Suspect]
     Dosage: 1 PILL WEEKLY TAKEN BY MOUTH
     Route: 048

REACTIONS (1)
  - Pain in jaw [None]
